FAERS Safety Report 6031714-8 (Version None)
Quarter: 2009Q1

REPORT INFORMATION
  Report Type: 
  Country: None (occurrence: None)
  Receive Date: 20090108
  Receipt Date: 20090106
  Transmission Date: 20090719
  Serious: Yes (Death, Other)
  Sender: FDA-Public Use
  Company Number: B0550916A

PATIENT
  Age: 36 Year
  Sex: Female

DRUGS (8)
  1. AZATHIOPRINE [Suspect]
     Indication: CHRONIC GRAFT VERSUS HOST DISEASE
     Dosage: 100MG TWICE PER DAY
     Route: 065
     Dates: end: 20050601
  2. PREDNISOLONE [Suspect]
     Indication: ACUTE GRAFT VERSUS HOST DISEASE
     Dosage: 60MG PER DAY
     Route: 065
  3. BUSULPHAN [Suspect]
     Dosage: 8MGK CUMULATIVE DOSE
     Route: 048
  4. CYCLOSPORINE [Suspect]
     Indication: CHRONIC GRAFT VERSUS HOST DISEASE
     Route: 065
  5. MYCOPHENOLATE MOFETIL [Suspect]
     Indication: CHRONIC GRAFT VERSUS HOST DISEASE
     Route: 065
  6. ALEMTUZUMAB [Suspect]
     Dosage: 100MG CUMULATIVE DOSE
     Route: 042
  7. FLUDARABINE PHOSPHATE [Suspect]
     Dosage: 150MGM2 CUMULATIVE DOSE
     Route: 042
  8. THALIDOMIDE [Suspect]
     Route: 065
     Dates: start: 20051001

REACTIONS (11)
  - ACUTE MYELOID LEUKAEMIA [None]
  - ANTINUCLEAR ANTIBODY POSITIVE [None]
  - ASPIRATION BONE MARROW ABNORMAL [None]
  - MICROANGIOPATHY [None]
  - MYELODYSPLASTIC SYNDROME [None]
  - MYELOFIBROSIS [None]
  - PANCYTOPENIA [None]
  - PLATELET COUNT ABNORMAL [None]
  - PYREXIA [None]
  - RED BLOOD CELL ABNORMALITY [None]
  - RHEUMATOID FACTOR POSITIVE [None]
